FAERS Safety Report 6089445-4 (Version None)
Quarter: 2009Q1

REPORT INFORMATION
  Report Type: 
  Country: None (occurrence: None)
  Receive Date: 20090219
  Receipt Date: 20090203
  Transmission Date: 20090719
  Serious: Yes (Death)
  Sender: FDA-Public Use
  Company Number: 8042811

PATIENT
  Age: 50 Year
  Sex: Female

DRUGS (4)
  1. PREDNISOLONE [Suspect]
     Indication: CUTANEOUS LUPUS ERYTHEMATOSUS
     Dosage: PO
     Route: 048
     Dates: start: 19820101
  2. AZATHIOPRINE [Suspect]
     Indication: CUTANEOUS LUPUS ERYTHEMATOSUS
     Dosage: PO
     Route: 048
     Dates: start: 19860101
  3. CHLOROQUINE PHOSPHATE [Suspect]
     Indication: CUTANEOUS LUPUS ERYTHEMATOSUS
     Dosage: 250 MG
     Dates: start: 19810101, end: 19860101
  4. METHYLPREDNISOLONE 4MG TAB [Suspect]
     Indication: CUTANEOUS LUPUS ERYTHEMATOSUS
     Dates: start: 19820101

REACTIONS (6)
  - BENIGN BREAST NEOPLASM [None]
  - BREAST CANCER FEMALE [None]
  - METASTASES TO BONE [None]
  - METASTASES TO LIVER [None]
  - METASTASES TO LUNG [None]
  - METASTASES TO LYMPH NODES [None]
